FAERS Safety Report 21102746 (Version 1)
Quarter: 2022Q3

REPORT INFORMATION
  Report Type: Other
  Country: GB (occurrence: GB)
  Receive Date: 20220720
  Receipt Date: 20220720
  Transmission Date: 20221027
  Serious: Yes (Other)
  Sender: FDA-Public Use
  Company Number: None

PATIENT
  Age: 90 Year
  Sex: Female
  Weight: 44 kg

DRUGS (16)
  1. PREDNISOLONE [Suspect]
     Active Substance: PREDNISOLONE
     Indication: Product used for unknown indication
     Dosage: 5 MILLIGRAM UNCOATED, ORAL TABLET
     Route: 048
     Dates: start: 20220711
  2. CALCIUM CARBONATE [Concomitant]
     Active Substance: CALCIUM CARBONATE
     Indication: Product used for unknown indication
     Dosage: 2 DOSAGE FORM PER DAY
     Route: 065
     Dates: start: 20200928
  3. AMITRIPTYLINE HYDROCHLORIDE [Concomitant]
     Active Substance: AMITRIPTYLINE HYDROCHLORIDE
     Indication: Product used for unknown indication
     Dosage: 1 DOSAGE FORM EARLY EVENING.
     Route: 065
     Dates: start: 20200928
  4. ASPIRIN [Concomitant]
     Active Substance: ASPIRIN
     Indication: Product used for unknown indication
     Dosage: 1 DOSAGE FORM PER DAY
     Route: 065
     Dates: start: 20200928
  5. CARBOMER [Concomitant]
     Active Substance: CARBOMER
     Indication: Product used for unknown indication
     Dosage: 1 DOSAGE FORM (DROPS 3 TO 4 TIMES) PER DAY
     Route: 065
     Dates: start: 20200928
  6. PEPPERMINT OIL [Concomitant]
     Active Substance: PEPPERMINT OIL
     Indication: Product used for unknown indication
     Dosage: 3 DOSAGE FORM PER DAY
     Route: 065
     Dates: start: 20200928, end: 20220701
  7. CYANOCOBALAMIN [Concomitant]
     Active Substance: CYANOCOBALAMIN
     Indication: Product used for unknown indication
     Dosage: 1 DOSAGE FORM PER DAY
     Route: 065
     Dates: start: 20220701
  8. DICLOFENAC DIETHYLAMINE [Concomitant]
     Active Substance: DICLOFENAC DIETHYLAMINE
     Indication: Product used for unknown indication
     Dosage: 3 DOSAGE FORM PER DAY
     Route: 065
     Dates: start: 20200928
  9. ESOMEPRAZOLE [Concomitant]
     Active Substance: ESOMEPRAZOLE
     Indication: Product used for unknown indication
     Dosage: 1 DOSAGE FORM PER DAY
     Route: 065
     Dates: start: 20211105
  10. FERROUS FUMARATE [Concomitant]
     Active Substance: FERROUS FUMARATE
     Indication: Product used for unknown indication
     Dosage: 1 DOSAGE FORM PER DAY
     Route: 065
     Dates: start: 20220701
  11. FOLIC ACID [Concomitant]
     Active Substance: FOLIC ACID
     Indication: Product used for unknown indication
     Dosage: 1 DOSAGE FORM PER DAY
     Route: 065
     Dates: start: 20200928
  12. FUROSEMIDE [Concomitant]
     Active Substance: FUROSEMIDE
     Indication: Product used for unknown indication
     Dosage: 2 DOSAGE FORM, EVERY MORNING
     Route: 065
     Dates: start: 20220530, end: 20220604
  13. LATANOPROST [Concomitant]
     Active Substance: LATANOPROST
     Indication: Product used for unknown indication
     Dosage: 1 DOSAGE FORM TO LEFT EYE AT NIGHT.
     Route: 065
     Dates: start: 20200928
  14. ACETAMINOPHEN [Concomitant]
     Active Substance: ACETAMINOPHEN
     Indication: Product used for unknown indication
     Dosage: 8 DOSAGE FORM PER DAY
     Route: 065
     Dates: start: 20220609, end: 20220709
  15. SIMVASTATIN [Concomitant]
     Active Substance: SIMVASTATIN
     Indication: Product used for unknown indication
     Dosage: 1 DOSAGE FORM, AT BED TIME
     Route: 065
     Dates: start: 20200928
  16. DILTIAZEM HYDROCHLORIDE [Concomitant]
     Active Substance: DILTIAZEM HYDROCHLORIDE
     Indication: Product used for unknown indication
     Dosage: 1 DOSAGE FORM PER DAY
     Route: 065
     Dates: start: 20200928

REACTIONS (1)
  - Hallucination [Recovered/Resolved]

NARRATIVE: CASE EVENT DATE: 20220711
